FAERS Safety Report 9837983 (Version 1)
Quarter: 2013Q4

REPORT INFORMATION
  Report Type: Spontaneous
  Country: US (occurrence: None)
  Receive Date: 20131205
  Receipt Date: 20131205
  Transmission Date: 20140711
  Serious: Yes (Hospitalization)
  Sender: FDA-Public Use
  Company Number: 163-POMAL-13100096

PATIENT
  Age: 76 Year
  Sex: Male
  Weight: 104.87 kg

DRUGS (10)
  1. POMALYST [Suspect]
     Indication: PLASMA CELL MYELOMA
     Route: 048
     Dates: start: 20130502, end: 201305
  2. ASPIRINE [Concomitant]
  3. OLMESARTAN [Concomitant]
  4. HCTZ [Concomitant]
  5. OMEPRAZOLE [Concomitant]
  6. SIMVASTATIN [Concomitant]
  7. ACYCLOVIR [Concomitant]
  8. OXYCODONE/ARAP [Concomitant]
  9. PROCHLORPERAZINE [Concomitant]
  10. LACTULOSE [Concomitant]

REACTIONS (3)
  - Pneumonia [None]
  - Pain [None]
  - Plasma cell myeloma [None]
